FAERS Safety Report 17072606 (Version 1)
Quarter: 2019Q4

REPORT INFORMATION
  Report Type: Spontaneous
  Country: US (occurrence: US)
  Receive Date: 20191125
  Receipt Date: 20191125
  Transmission Date: 20200122
  Serious: No
  Sender: FDA-Public Use
  Company Number: US-BIODELIVERY SCIENCES INTERNATIONAL-2019BDSI0108

PATIENT
  Age: 61 Year
  Sex: Male
  Weight: 112.14 kg

DRUGS (1)
  1. BUPRENORPHINE. [Suspect]
     Active Substance: BUPRENORPHINE
     Indication: BACK PAIN
     Route: 002
     Dates: start: 20190209

REACTIONS (6)
  - Wrong technique in product usage process [Recovered/Resolved]
  - Product adhesion issue [Unknown]
  - Insomnia [Unknown]
  - Lacrimation increased [Unknown]
  - Eye irritation [Unknown]
  - Headache [Unknown]

NARRATIVE: CASE EVENT DATE: 201902
